FAERS Safety Report 13838494 (Version 1)
Quarter: 2017Q3

REPORT INFORMATION
  Report Type: Spontaneous
  Country: US (occurrence: US)
  Receive Date: 20170804
  Receipt Date: 20170804
  Transmission Date: 20171127
  Serious: Yes (Other)
  Sender: FDA-Public Use
  Company Number: None

PATIENT
  Sex: Male
  Weight: 103.5 kg

DRUGS (5)
  1. GENERIC FOR AMBIEN [Suspect]
     Active Substance: ZOLPIDEM TARTRATE
     Dates: start: 20170710, end: 20170803
  2. MELATONIN [Concomitant]
     Active Substance: MELATONIN
  3. VITAMINES [Concomitant]
  4. ENDURANCE PRODUCTS [Concomitant]
  5. ALKA-SELTZER [Concomitant]
     Active Substance: ANHYDROUS CITRIC ACID\ASPIRIN\SODIUM BICARBONATE

REACTIONS (2)
  - Insomnia [None]
  - Drug ineffective [None]
